FAERS Safety Report 6424016-9 (Version None)
Quarter: 2009Q4

REPORT INFORMATION
  Report Type: 
  Country: None (occurrence: None)
  Receive Date: 20091102
  Receipt Date: 20091019
  Transmission Date: 20100525
  Serious: Yes (Hospitalization)
  Sender: FDA-Public Use
  Company Number: IL-MYLANLABS-2009S1018186

PATIENT
  Age: 74 Year
  Sex: Female

DRUGS (1)
  1. CLOMIPRAMINE [Suspect]
     Indication: DEPRESSION

REACTIONS (1)
  - SEROTONIN SYNDROME [None]
